FAERS Safety Report 16715227 (Version 1)
Quarter: 2019Q3

REPORT INFORMATION
  Report Type: Spontaneous
  Country: US (occurrence: US)
  Receive Date: 20190819
  Receipt Date: 20190819
  Transmission Date: 20191005
  Serious: No
  Sender: FDA-Public Use
  Company Number: US-PFIZER INC-2019347329

PATIENT
  Age: 65 Year
  Sex: Female

DRUGS (1)
  1. POTASSIUM CHLORIDE. [Suspect]
     Active Substance: POTASSIUM CHLORIDE
     Indication: NUTRITIONAL SUPPLEMENTATION
     Dosage: 2 MEQ/ML AND DO 6 ML DILUTED WITH STERILE WATER
     Route: 042
     Dates: start: 20181215

REACTIONS (3)
  - Infusion site pruritus [Recovered/Resolved]
  - Drug hypersensitivity [Recovered/Resolved]
  - Infusion site rash [Recovered/Resolved]

NARRATIVE: CASE EVENT DATE: 20190803
